FAERS Safety Report 8578998-X (Version None)
Quarter: 2012Q3

REPORT INFORMATION
  Report Type: 
  Country: None (occurrence: None)
  Receive Date: 20120808
  Receipt Date: 20120806
  Transmission Date: 20120928
  Serious: Yes (Death, Other)
  Sender: FDA-Public Use
  Company Number: VE-PFIZER INC-2012191939

PATIENT
  Age: 80 Year
  Sex: Male

DRUGS (1)
  1. LIPITOR [Suspect]
     Indication: CARDIOVASCULAR DISORDER
     Dosage: 80 MG, UNK

REACTIONS (3)
  - RHABDOMYOLYSIS [None]
  - MYALGIA [None]
  - DEATH [None]
